FAERS Safety Report 15533364 (Version 1)
Quarter: 2018Q4

REPORT INFORMATION
  Report Type: Spontaneous
  Country: US (occurrence: US)
  Receive Date: 20181019
  Receipt Date: 20181019
  Transmission Date: 20190205
  Serious: Yes (Hospitalization, Other)
  Sender: FDA-Public Use
  Company Number: US-SANIK-2018SA285299AA

PATIENT
  Age: 80 Year
  Sex: Male

DRUGS (2)
  1. NOVOLIN R [Suspect]
     Active Substance: INSULIN HUMAN
     Indication: TYPE 2 DIABETES MELLITUS
     Dosage: 21 U, QD
     Dates: start: 2016
  2. PLAVIX [Suspect]
     Active Substance: CLOPIDOGREL BISULFATE
     Indication: CEREBROVASCULAR ACCIDENT
     Route: 048

REACTIONS (7)
  - Product quality issue [Unknown]
  - Urinary tract infection [Recovered/Resolved]
  - Urinary bladder haemorrhage [Recovered/Resolved]
  - Cerebrovascular accident [Unknown]
  - Blood glucose increased [Unknown]
  - Hypotension [Unknown]
  - Drug ineffective [Unknown]

NARRATIVE: CASE EVENT DATE: 2016
